FAERS Safety Report 4455520-0 (Version None)
Quarter: 2004Q3

REPORT INFORMATION
  Report Type: 
  Country: None (occurrence: None)
  Receive Date: 20040922
  Receipt Date: 20040602
  Transmission Date: 20050211
  Serious: Yes (Disabling)
  Sender: FDA-Public Use
  Company Number: 200412736EU

PATIENT
  Age: 65 Year
  Sex: Male

DRUGS (5)
  1. DOCETAXEL [Suspect]
     Indication: NON-SMALL CELL LUNG CANCER
     Route: 042
     Dates: start: 20040513, end: 20040513
  2. CARBOPLATIN [Suspect]
     Indication: NON-SMALL CELL LUNG CANCER
     Route: 042
     Dates: start: 20040513, end: 20040614
  3. TERBASMIN [Concomitant]
     Indication: ASTHMA
     Dosage: DOSE: 2.5-3
     Route: 055
  4. SYMBICORT [Concomitant]
  5. AMARYL [Concomitant]
     Indication: DIABETES MELLITUS NON-INSULIN-DEPENDENT
     Route: 048

REACTIONS (7)
  - ASCITES [None]
  - CAPILLARY LEAK SYNDROME [None]
  - DERMATITIS ALLERGIC [None]
  - DERMATITIS BULLOUS [None]
  - OEDEMA PERIPHERAL [None]
  - PLEURAL EFFUSION [None]
  - RASH GENERALISED [None]
